FAERS Safety Report 6892209-2 (Version None)
Quarter: 2010Q3

REPORT INFORMATION
  Report Type: 
  Country: None (occurrence: None)
  Receive Date: 20100731
  Receipt Date: 20080229
  Transmission Date: 20110219
  Serious: No
  Sender: FDA-Public Use
  Company Number: US-PFIZER INC-2007092347

PATIENT
  Sex: Female

DRUGS (2)
  1. AMLODIPINE [Suspect]
     Indication: HYPERTENSION
  2. NORVASC [Suspect]
     Indication: HYPERTENSION

REACTIONS (3)
  - CHEST DISCOMFORT [None]
  - MUSCULOSKELETAL PAIN [None]
  - TORTICOLLIS [None]
